FAERS Safety Report 6316532-5 (Version None)
Quarter: 2009Q3

REPORT INFORMATION
  Report Type: 
  Country: None (occurrence: None)
  Receive Date: 20090820
  Receipt Date: 20090812
  Transmission Date: 20100115
  Serious: Yes (Life-Threatening)
  Sender: FDA-Public Use
  Company Number: JP-ABBOTT-09P-087-0590811-00

PATIENT
  Age: 58 Year
  Sex: Male

DRUGS (12)
  1. WARFARIN [Suspect]
     Indication: DRUG USE FOR UNKNOWN INDICATION
     Route: 048
  2. SUTENT [Suspect]
     Indication: RENAL CELL CARCINOMA
     Route: 048
     Dates: start: 20081202, end: 20090414
  3. GASTROM [Concomitant]
     Indication: DRUG USE FOR UNKNOWN INDICATION
  4. HYPEN [Concomitant]
     Indication: DRUG USE FOR UNKNOWN INDICATION
  5. SELBEX [Concomitant]
     Indication: DRUG USE FOR UNKNOWN INDICATION
  6. PREDONINE [Concomitant]
     Indication: DRUG USE FOR UNKNOWN INDICATION
  7. LASIX [Concomitant]
     Indication: DRUG USE FOR UNKNOWN INDICATION
  8. URINORM [Concomitant]
     Indication: DRUG USE FOR UNKNOWN INDICATION
  9. PARIET [Concomitant]
     Indication: DRUG USE FOR UNKNOWN INDICATION
  10. INDERAL [Concomitant]
     Indication: DRUG USE FOR UNKNOWN INDICATION
  11. NORVASC [Concomitant]
     Indication: DRUG USE FOR UNKNOWN INDICATION
  12. HARNAL [Concomitant]
     Indication: DRUG USE FOR UNKNOWN INDICATION

REACTIONS (1)
  - CEREBRAL HAEMORRHAGE [None]
